FAERS Safety Report 21978740 (Version 1)
Quarter: 2023Q1

REPORT INFORMATION
  Report Type: Spontaneous
  Country: US (occurrence: US)
  Receive Date: 20230210
  Receipt Date: 20230210
  Transmission Date: 20230418
  Serious: Yes (Hospitalization, Other)
  Sender: FDA-Public Use
  Company Number: US-002147023-NVSC2023US024802

PATIENT
  Age: 2 Year
  Sex: Female

DRUGS (1)
  1. BRIMONIDINE [Suspect]
     Active Substance: BRIMONIDINE TARTRATE
     Indication: Product used for unknown indication
     Dosage: UNK
     Route: 048

REACTIONS (5)
  - Toxicity to various agents [Recovering/Resolving]
  - Mental status changes [Unknown]
  - Unresponsive to stimuli [Unknown]
  - Dizziness [Unknown]
  - Accidental exposure to product by child [Unknown]
